FAERS Safety Report 8820946 (Version 2)
Quarter: 2012Q4

REPORT INFORMATION
  Report Type: 
  Country: US (occurrence: US)
  Receive Date: 20121002
  Receipt Date: 20121005
  Transmission Date: 20130627
  Serious: Yes (Disabling)
  Sender: FDA-Public Use
  Company Number: US-ROCHE-1135270

PATIENT
  Age: 77 Year
  Sex: Male

DRUGS (2)
  1. LUCENTIS [Suspect]
     Indication: AGE-RELATED MACULAR DEGENERATION
     Dosage: dose: 6.05
     Route: 031
     Dates: start: 20120911
  2. ATENOLOL [Concomitant]
     Route: 065

REACTIONS (1)
  - Retinal artery occlusion [Not Recovered/Not Resolved]
